FAERS Safety Report 5483886-1 (Version None)
Quarter: 2007Q4

REPORT INFORMATION
  Report Type: 
  Country: None (occurrence: None)
  Receive Date: 20071009
  Receipt Date: 20070927
  Transmission Date: 20080405
  Serious: Yes (Other)
  Sender: FDA-Public Use
  Company Number: 17602

PATIENT
  Age: 66 Year
  Sex: Male
  Weight: 75.2 kg

DRUGS (2)
  1. PACLITAXEL [Suspect]
     Indication: NON-SMALL CELL LUNG CANCER
     Dosage: 324 MG FREQ; IV
     Route: 042
     Dates: start: 20070829, end: 20070829
  2. BENDROFLUAZIDE [Concomitant]

REACTIONS (5)
  - DIZZINESS [None]
  - FEELING HOT [None]
  - FLUSHING [None]
  - OXYGEN SATURATION DECREASED [None]
  - SYNCOPE [None]
